FAERS Safety Report 16276478 (Version 3)
Quarter: 2019Q3

REPORT INFORMATION
  Report Type: Not Available
  Country: US (occurrence: US)
  Receive Date: 20190505
  Receipt Date: 20190712
  Transmission Date: 20191004
  Serious: No
  Sender: FDA-Public Use
  Company Number: US-NEUROCRINE BIOSCIENCES INC.-2019NBI01045

PATIENT
  Sex: Female

DRUGS (11)
  1. BUSPIRONE HCL [Concomitant]
     Active Substance: BUSPIRONE HYDROCHLORIDE
     Route: 048
     Dates: start: 20190621
  2. INGREZZA [Suspect]
     Active Substance: VALBENAZINE
     Indication: TARDIVE DYSKINESIA
     Route: 048
     Dates: start: 20170915
  3. METHOCARBAMOL. [Concomitant]
     Active Substance: METHOCARBAMOL
  4. VITAMIN D2 [Concomitant]
     Active Substance: ERGOCALCIFEROL
     Dosage: 50,000 UNIT
     Route: 048
  5. FLORASTOR [Concomitant]
     Active Substance: SACCHAROMYCES CEREVISIAE
  6. TOPAMAX [Concomitant]
     Active Substance: TOPIRAMATE
     Dosage: 1/2 TABLET
     Route: 048
     Dates: start: 20190621
  7. HORIZANT [Concomitant]
     Active Substance: GABAPENTIN ENACARBIL
  8. HYDROXYZINE PAMOATE. [Concomitant]
     Active Substance: HYDROXYZINE PAMOATE
     Dosage: AT BEDTIME AS NEEDED
     Route: 048
     Dates: start: 20190621
  9. LATUDA [Concomitant]
     Active Substance: LURASIDONE HYDROCHLORIDE
     Dosage: WITH FOOD AT LEAST 350 CALORIES
     Route: 048
     Dates: start: 20190621
  10. FLUOXETINE HCL [Concomitant]
     Active Substance: FLUOXETINE HYDROCHLORIDE
     Route: 048
     Dates: start: 20190621
  11. LITHIUM CARBONATE. [Concomitant]
     Active Substance: LITHIUM CARBONATE
     Route: 048
     Dates: start: 20190621

REACTIONS (1)
  - Adverse drug reaction [Unknown]
